FAERS Safety Report 13984131 (Version 2)
Quarter: 2018Q2

REPORT INFORMATION
  Report Type: Spontaneous
  Country: FR (occurrence: FR)
  Receive Date: 20170918
  Receipt Date: 20180514
  Transmission Date: 20180711
  Serious: Yes (Other)
  Sender: FDA-Public Use
  Company Number: FR-MERCK KGAA-2026688

PATIENT
  Age: 42 Year
  Sex: Female
  Weight: 59 kg

DRUGS (1)
  1. NOVOTHYROX [Suspect]
     Active Substance: LEVOTHYROXINE SODIUM
     Indication: THYROIDECTOMY
     Route: 048

REACTIONS (27)
  - Fatigue [Not Recovered/Not Resolved]
  - Social problem [None]
  - Muscle spasms [None]
  - Urinary sediment present [None]
  - Diarrhoea [None]
  - Feeling jittery [None]
  - Menstrual disorder [None]
  - Tremor [None]
  - Myalgia [Not Recovered/Not Resolved]
  - Ocular discomfort [None]
  - Migraine [None]
  - Impaired driving ability [Not Recovered/Not Resolved]
  - Mood altered [None]
  - Blood potassium increased [Not Recovered/Not Resolved]
  - Disturbance in attention [None]
  - Palpitations [None]
  - Gastrointestinal motility disorder [Not Recovered/Not Resolved]
  - Arthralgia [None]
  - Dizziness [None]
  - Malaise [Not Recovered/Not Resolved]
  - Thyroxine increased [None]
  - Headache [Not Recovered/Not Resolved]
  - Loss of personal independence in daily activities [None]
  - Anger [None]
  - Nausea [Not Recovered/Not Resolved]
  - Amnesia [None]
  - Blood thyroid stimulating hormone abnormal [None]

NARRATIVE: CASE EVENT DATE: 20170501
